FAERS Safety Report 23668124 (Version 1)
Quarter: 2024Q1

REPORT INFORMATION
  Report Type: Spontaneous
  Country: US (occurrence: None)
  Receive Date: 20240322
  Receipt Date: 20240322
  Transmission Date: 20240410
  Serious: No
  Sender: FDA-Public Use
  Company Number: None

PATIENT
  Age: 66 Year
  Sex: Female
  Weight: 81 kg

DRUGS (7)
  1. CLARISCAN [Suspect]
     Active Substance: GADOTERATE MEGLUMINE
     Indication: X-ray with contrast
     Dosage: OTHER FREQUENCY : ONE TIME USE;?OTHER ROUTE : INJECTION;?
     Route: 050
     Dates: start: 20240314, end: 20240314
  2. LEVOTHYROXINE [Concomitant]
  3. SIMVASTATIN [Concomitant]
  4. LISINOPRIL [Concomitant]
  5. METFORMIN [Concomitant]
  6. VITAMIN B12 [Concomitant]
     Active Substance: CYANOCOBALAMIN
  7. VITAMIN D [Concomitant]
     Active Substance: VITAMIN D NOS

REACTIONS (1)
  - Injection site coldness [None]

NARRATIVE: CASE EVENT DATE: 20240315
